FAERS Safety Report 6543824-7 (Version None)
Quarter: 2010Q1

REPORT INFORMATION
  Report Type: 
  Country: None (occurrence: None)
  Receive Date: 20100119
  Receipt Date: 20100119
  Transmission Date: 20100710
  Serious: No
  Sender: FDA-Public Use
  Company Number: None

PATIENT
  Age: 45 Year
  Sex: Male
  Weight: 90.7194 kg

DRUGS (2)
  1. PROAIR HFA [Suspect]
     Indication: ASTHMA
     Dosage: 1 PUFF 6 HOURS/AS NEEDED INHAL
     Route: 055
     Dates: start: 20090101, end: 20100118
  2. PROAIR HFA [Suspect]
     Indication: MULTIPLE ALLERGIES
     Dosage: 1 PUFF 6 HOURS/AS NEEDED INHAL
     Route: 055
     Dates: start: 20090101, end: 20100118

REACTIONS (4)
  - ASTHMA [None]
  - CONDITION AGGRAVATED [None]
  - DRUG INEFFECTIVE [None]
  - PRODUCT QUALITY ISSUE [None]
